FAERS Safety Report 10177993 (Version 1)
Quarter: 2014Q2

REPORT INFORMATION
  Report Type: Spontaneous
  Country: CA (occurrence: CA)
  Receive Date: 20140516
  Receipt Date: 20140516
  Transmission Date: 20141212
  Serious: Yes (Other)
  Sender: FDA-Public Use
  Company Number: PHHY2014CA057696

PATIENT
  Age: 68 Year
  Sex: Female

DRUGS (6)
  1. ALENDRONATE SANDOZ [Suspect]
     Indication: OSTEOPOROSIS
     Dosage: 70 MG, QW
     Route: 048
     Dates: end: 20140320
  2. ACETAMINOPHEN [Concomitant]
  3. PREGABALIN [Concomitant]
  4. PANTOPRAZOLE [Concomitant]
  5. HYDROCHLOROTHIAZIDE [Concomitant]
     Dosage: 25 MG, UNK
  6. ATENOLOL [Concomitant]
     Dosage: 25 MG, UNK

REACTIONS (4)
  - Insomnia [Recovering/Resolving]
  - Ocular hyperaemia [Recovering/Resolving]
  - Myalgia [Recovering/Resolving]
  - Arthralgia [Recovering/Resolving]
